FAERS Safety Report 7555844-4 (Version None)
Quarter: 2011Q2

REPORT INFORMATION
  Report Type: 
  Country: None (occurrence: None)
  Receive Date: 20110618
  Receipt Date: 20091031
  Transmission Date: 20111010
  Serious: Yes (Death, Hospitalization, Other)
  Sender: FDA-Public Use
  Company Number: US-BAYER-200937897NA

PATIENT
  Age: 75 Year
  Sex: Female
  Weight: 61.24 kg

DRUGS (14)
  1. CELEBREX [Concomitant]
  2. VERSED [Concomitant]
     Dosage: UNK
     Dates: start: 20070821
  3. ANCEF [Concomitant]
     Dosage: 1 G, UNK
     Route: 042
     Dates: start: 20070821
  4. INSULIN [Concomitant]
     Dosage: UNK
     Route: 042
     Dates: start: 20070821, end: 20070821
  5. RED BLOOD CELLS [Concomitant]
     Dosage: 30 U, UNK
     Route: 042
     Dates: start: 20070821
  6. TRIAMTERENE [Concomitant]
     Dosage: 37.5/25MG TWICE DAILY
     Route: 048
  7. DEMADEX [Concomitant]
     Dosage: 20 MG, QD
     Route: 048
     Dates: start: 20070803
  8. METOPROLOL TARTRATE [Concomitant]
  9. TRASYLOL [Suspect]
     Indication: AORTIC ANEURYSM
     Dosage: 200ML
     Route: 042
     Dates: start: 20070821, end: 20070821
  10. SYNTHROID [Concomitant]
     Dosage: 0.1 MG, QD
     Route: 048
  11. HEPARIN [Concomitant]
     Dosage: UNK
     Route: 042
     Dates: start: 20070821
  12. TRASYLOL [Suspect]
     Indication: CARDIOPULMONARY BYPASS
     Dosage: 50ML/HOUR
     Route: 042
     Dates: start: 20070821, end: 20070821
  13. LIPITOR [Concomitant]
     Dosage: 20 MG, QD
     Route: 048
  14. NITROGLYCERIN [Concomitant]
     Dosage: UNK
     Route: 042
     Dates: start: 20070821, end: 20070821

REACTIONS (14)
  - EMOTIONAL DISTRESS [None]
  - STRESS [None]
  - MULTI-ORGAN FAILURE [None]
  - RENAL INJURY [None]
  - INJURY [None]
  - CEREBROVASCULAR ACCIDENT [None]
  - RENAL IMPAIRMENT [None]
  - ANXIETY [None]
  - ANHEDONIA [None]
  - DEATH [None]
  - RENAL FAILURE [None]
  - UNEVALUABLE EVENT [None]
  - FEAR [None]
  - PAIN [None]
